FAERS Safety Report 17456644 (Version 1)
Quarter: 2020Q1

REPORT INFORMATION
  Report Type: Spontaneous
  Country: CA (occurrence: CA)
  Receive Date: 20200225
  Receipt Date: 20200225
  Transmission Date: 20200409
  Serious: Yes (Other)
  Sender: FDA-Public Use
  Company Number: CA-TEVA-2020-CA-1189657

PATIENT
  Age: 42 Year
  Sex: Male

DRUGS (1)
  1. SILDENAFIL CITRATE. [Suspect]
     Active Substance: SILDENAFIL CITRATE
     Indication: ERECTILE DYSFUNCTION
     Route: 065

REACTIONS (5)
  - Brain injury [Unknown]
  - Dyschromatopsia [Unknown]
  - Visual impairment [Unknown]
  - Head discomfort [Unknown]
  - Therapeutic product effect increased [Unknown]
